FAERS Safety Report 10914194 (Version 1)
Quarter: 2015Q1

REPORT INFORMATION
  Report Type: Spontaneous
  Country: US (occurrence: US)
  Receive Date: 20150313
  Receipt Date: 20150313
  Transmission Date: 20150721
  Serious: Yes (Other)
  Sender: FDA-Public Use
  Company Number: US-BAUSCH-BL-2015-004000

PATIENT
  Age: 18 Year
  Sex: Female
  Weight: 46.31 kg

DRUGS (4)
  1. TIROSINT [Concomitant]
     Active Substance: LEVOTHYROXINE SODIUM
     Indication: PRODUCT USED FOR UNKNOWN INDICATION
  2. MULTIVITAMINS [Concomitant]
     Active Substance: VITAMINS
     Indication: PRODUCT USED FOR UNKNOWN INDICATION
  3. SOLODYN [Suspect]
     Active Substance: MINOCYCLINE HYDROCHLORIDE
     Route: 048
     Dates: start: 201501, end: 20150211
  4. SOLODYN [Suspect]
     Active Substance: MINOCYCLINE HYDROCHLORIDE
     Indication: SCAR
     Route: 048
     Dates: start: 201403

REACTIONS (15)
  - Syncope [Recovered/Resolved]
  - Hepatotoxicity [None]
  - Weight decreased [Unknown]
  - Rash [Recovering/Resolving]
  - Headache [Recovered/Resolved]
  - Pericardial effusion [Not Recovered/Not Resolved]
  - Night sweats [Recovering/Resolving]
  - Autoimmune hepatitis [Unknown]
  - Pain [Recovered/Resolved]
  - Arthralgia [Not Recovered/Not Resolved]
  - Dizziness [Recovered/Resolved]
  - Chills [Recovering/Resolving]
  - Supraventricular tachycardia [Unknown]
  - Pyrexia [Recovered/Resolved]
  - Vertigo [Unknown]

NARRATIVE: CASE EVENT DATE: 2014
